FAERS Safety Report 4807830-2 (Version None)
Quarter: 2005Q4

REPORT INFORMATION
  Report Type: 
  Country: None (occurrence: None)
  Receive Date: 20051021
  Receipt Date: 20051011
  Transmission Date: 20060501
  Serious: Yes (Death, Hospitalization)
  Sender: FDA-Public Use
  Company Number: GXKR2005US01784

PATIENT
  Sex: 0

DRUGS (1)
  1. ACETAMINOPHEN [Suspect]

REACTIONS (8)
  - ACIDOSIS [None]
  - AZOTAEMIA [None]
  - COMA [None]
  - DRUG TOXICITY [None]
  - HEPATIC ENZYME INCREASED [None]
  - HYPOTENSION [None]
  - OVERDOSE [None]
  - RENAL IMPAIRMENT [None]
